FAERS Safety Report 9674662 (Version 1)
Quarter: 2013Q4

REPORT INFORMATION
  Report Type: Spontaneous
  Country: US (occurrence: None)
  Receive Date: 20131106
  Receipt Date: 20131106
  Transmission Date: 20140711
  Serious: Yes (Other)
  Sender: FDA-Public Use
  Company Number: None

PATIENT
  Age: 62 Year
  Sex: Male
  Weight: 94.35 kg

DRUGS (1)
  1. LEVOCETIRIZINE [Suspect]
     Indication: SINUSITIS
     Dosage: 1 PILL ONCE DAILY
     Route: 048
     Dates: start: 20131027, end: 20131029

REACTIONS (1)
  - Renal pain [None]
